FAERS Safety Report 7537328-2 (Version None)
Quarter: 2011Q2

REPORT INFORMATION
  Report Type: 
  Country: None (occurrence: None)
  Receive Date: 20110609
  Receipt Date: 20110606
  Transmission Date: 20111010
  Serious: Yes (Other)
  Sender: FDA-Public Use
  Company Number: IT-PFIZER INC-2011123275

PATIENT
  Sex: Female

DRUGS (1)
  1. EPIRUBICIN HYDROCHLORIDE [Suspect]

REACTIONS (5)
  - CONSTIPATION [None]
  - HYPERTRANSAMINASAEMIA [None]
  - ALOPECIA [None]
  - NAUSEA [None]
  - NEUTROPENIA [None]
